FAERS Safety Report 8522676-X (Version None)
Quarter: 2012Q3

REPORT INFORMATION
  Report Type: 
  Country: None (occurrence: None)
  Receive Date: 20120719
  Receipt Date: 20120712
  Transmission Date: 20120928
  Serious: Yes (Hospitalization)
  Sender: FDA-Public Use
  Company Number: CA-GLAXOSMITHKLINE-A0962006A

PATIENT
  Sex: Female
  Weight: 75 kg

DRUGS (2)
  1. FLOLAN [Suspect]
     Indication: PULMONARY HYPERTENSION
     Dosage: 3.4MLH CONTINUOUS
     Route: 042
     Dates: start: 20081113
  2. FLOLAN [Suspect]
     Indication: PULMONARY HYPERTENSION
     Route: 042
     Dates: start: 20081113

REACTIONS (2)
  - HOSPITALISATION [None]
  - LUNG TRANSPLANT [None]
